FAERS Safety Report 4582620-7 (Version None)
Quarter: 2005Q1

REPORT INFORMATION
  Report Type: 
  Country: None (occurrence: None)
  Receive Date: 20050125
  Receipt Date: 20040924
  Transmission Date: 20050727
  Serious: No
  Sender: FDA-Public Use
  Company Number: USA040979323

PATIENT
  Age: 82 Year
  Sex: Female

DRUGS (17)
  1. FORTEO [Suspect]
     Indication: OSTEOPOROSIS
     Dates: start: 20040801
  2. INDERAL (PROPANOLOL HYDROCHLORIDE) [Concomitant]
  3. ZOLOFT [Concomitant]
  4. MECLIZINE [Concomitant]
  5. FLAXSEED OIL [Concomitant]
  6. BORAGE OIL [Concomitant]
  7. PABA TAB [Concomitant]
  8. CALCIUM CITRATE WITH VITAMIN D [Concomitant]
  9. FOLIC ACID [Concomitant]
  10. BIOTIN [Concomitant]
  11. ACIDOPHILUS [Concomitant]
  12. MULTIVITAMIN [Concomitant]
  13. VITAMIN A [Concomitant]
  14. VITAMIN B COMPLEX CAP [Concomitant]
  15. VITAMIN D [Concomitant]
  16. EYE DROPS/USA/(TETRYZOLINE HYDROCHLORIDE) [Concomitant]
  17. AMOXICILLIN [Concomitant]

REACTIONS (10)
  - CATARACT [None]
  - ENDODONTIC PROCEDURE [None]
  - FATIGUE [None]
  - HICCUPS [None]
  - KYPHOSIS [None]
  - MUSCLE SPASMS [None]
  - NAUSEA [None]
  - SOMNOLENCE [None]
  - THIRST [None]
  - WEIGHT INCREASED [None]
